FAERS Safety Report 9960528 (Version 1)
Quarter: 2014Q1

REPORT INFORMATION
  Report Type: Report from Study
  Country: US (occurrence: US)
  Receive Date: 20140305
  Receipt Date: 20140305
  Transmission Date: 20141002
  Serious: No
  Sender: FDA-Public Use
  Company Number: US-ABBVIE-13P-163-1110246-00

PATIENT
  Age: 33 Year
  Sex: Female

DRUGS (3)
  1. HUMIRA [Suspect]
     Indication: PSORIASIS
     Dates: start: 20130222
  2. CELEXA [Concomitant]
     Indication: DEPRESSION
     Dosage: 20 MG DAILY
  3. CELEXA [Concomitant]
     Indication: ANXIETY

REACTIONS (3)
  - Foot fracture [Recovering/Resolving]
  - Psoriasis [Recovering/Resolving]
  - Streptococcal infection [Recovering/Resolving]
